FAERS Safety Report 15822321 (Version 1)
Quarter: 2018Q4

REPORT INFORMATION
  Report Type: Spontaneous
  Country: US (occurrence: US)
  Receive Date: 20181217
  Receipt Date: 20181217
  Transmission Date: 20190205
  Serious: Yes (Life-Threatening)
  Sender: FDA-Public Use
  Company Number: None

PATIENT
  Age: 53 Year
  Sex: Male
  Weight: 105 kg

DRUGS (1)
  1. VANCOMYCIN [Suspect]
     Active Substance: VANCOMYCIN
     Indication: UPPER RESPIRATORY TRACT INFECTION
     Route: 042
     Dates: start: 20180907, end: 20180907

REACTIONS (5)
  - Cough [None]
  - Infusion related reaction [None]
  - Retching [None]
  - Throat tightness [None]
  - Anaphylactic reaction [None]

NARRATIVE: CASE EVENT DATE: 20180907
